FAERS Safety Report 7792579-7 (Version None)
Quarter: 2011Q4

REPORT INFORMATION
  Report Type: 
  Country: None (occurrence: None)
  Receive Date: 20111003
  Receipt Date: 20110920
  Transmission Date: 20120403
  Serious: Yes (Hospitalization)
  Sender: FDA-Public Use
  Company Number: US-BAYER-2011-052563

PATIENT
  Sex: Female
  Weight: 84 kg

DRUGS (9)
  1. ALLEGRA [Concomitant]
  2. GAS-X [Concomitant]
     Dosage: UNK
     Dates: start: 20091116
  3. YAZ [Suspect]
     Indication: CONTRACEPTION
  4. CYMBALTA [Concomitant]
     Indication: DEPRESSION
     Dosage: UNK
     Dates: start: 20081128, end: 20091029
  5. YAZ [Suspect]
     Indication: ACNE
     Dosage: UNK
     Route: 048
     Dates: start: 20070101, end: 20090101
  6. ALBUTEROL [Concomitant]
     Dosage: UNK
     Dates: start: 20090829
  7. M.V.I. [Concomitant]
     Dosage: UNK
     Dates: start: 20091116
  8. FEXOFENADINE HYDROCHLORIDE [Concomitant]
     Dosage: 180 MG, UNK
     Dates: start: 20081012, end: 20100305
  9. PROVENTIL [Concomitant]
     Dosage: UNK
     Dates: start: 20090829

REACTIONS (4)
  - CHOLECYSTITIS ACUTE [None]
  - GALLBLADDER DISORDER [None]
  - PAIN [None]
  - INJURY [None]
